FAERS Safety Report 4839796-3 (Version None)
Quarter: 2005Q4

REPORT INFORMATION
  Report Type: 
  Country: None (occurrence: None)
  Receive Date: 20051129
  Receipt Date: 20051117
  Transmission Date: 20060501
  Serious: Yes (Hospitalization)
  Sender: FDA-Public Use
  Company Number: US-SANOFI-SYNTHELABO-A03200503825

PATIENT
  Sex: Female
  Weight: 76.2 kg

DRUGS (18)
  1. PLAQUENIL [Suspect]
     Indication: SYSTEMIC LUPUS ERYTHEMATOSUS
     Route: 048
     Dates: start: 20030201, end: 20051012
  2. SILDENAFIL [Concomitant]
     Route: 048
     Dates: start: 20040203
  3. TYLENOL W/ CODEINE [Concomitant]
     Dosage: UNK
     Route: 048
  4. WARFARIN SODIUM [Concomitant]
     Dosage: UNK
     Route: 048
  5. PREDNISONE [Concomitant]
     Dosage: UNK
     Route: 048
  6. XANAX [Concomitant]
     Dosage: UNK
     Route: 048
  7. FLOLAN [Concomitant]
     Dosage: UNK
     Route: 042
  8. CALCIUM GLUCONATE [Concomitant]
     Dosage: UNK
     Route: 048
  9. MULTI-VITAMINS [Concomitant]
     Dosage: UNK
     Route: 048
  10. DIGOXIN [Concomitant]
     Dosage: UNK
     Route: 048
  11. SOMA [Concomitant]
     Dosage: UNK
     Route: 048
  12. FOLIC ACID [Concomitant]
     Dosage: UNK
     Route: 048
  13. EFFEXOR [Concomitant]
     Dosage: UNK
     Route: 048
  14. SPIRONOLACTONE [Concomitant]
     Dosage: UNK
     Route: 048
  15. LOPERAMIDE [Concomitant]
     Dosage: UNK
     Route: 048
  16. CELEBREX [Concomitant]
     Dosage: UNK
     Route: 048
  17. PROTONIX [Concomitant]
     Dosage: UNK
     Route: 048
  18. CYTOXAN [Concomitant]
     Dosage: UNK
     Route: 065

REACTIONS (5)
  - CHEST PAIN [None]
  - HAEMOPTYSIS [None]
  - INFECTION [None]
  - PANCYTOPENIA [None]
  - SYSTEMIC LUPUS ERYTHEMATOSUS [None]
